FAERS Safety Report 15555989 (Version 4)
Quarter: 2020Q3

REPORT INFORMATION
  Report Type: Report from Study
  Country: US (occurrence: US)
  Receive Date: 20181026
  Receipt Date: 20181226
  Transmission Date: 20201104
  Serious: Yes (Hospitalization)
  Sender: FDA-Public Use
  Company Number: US-JNJFOC-20181035974

PATIENT
  Age: 73 Year
  Sex: Male
  Weight: 89.1 kg

DRUGS (25)
  1. BENZONATATE. [Concomitant]
     Active Substance: BENZONATATE
     Indication: COUGH
     Dosage: 5 (UNITS UNSPECIFIED)
     Route: 048
     Dates: start: 20180208
  2. ASPIRIN. [Concomitant]
     Active Substance: ASPIRIN
     Indication: THROMBOSIS PROPHYLAXIS
     Route: 048
     Dates: start: 20150629
  3. ERGOCALCIFEROL. [Concomitant]
     Active Substance: ERGOCALCIFEROL
     Indication: VITAMIN D DEFICIENCY
     Route: 048
     Dates: start: 20160831
  4. DARATUMUMAB [Suspect]
     Active Substance: DARATUMUMAB
     Route: 042
  5. DARATUMUMAB [Suspect]
     Active Substance: DARATUMUMAB
     Indication: PLASMA CELL MYELOMA
     Dosage: 16.0 MG/KG
     Route: 042
     Dates: start: 20160819
  6. PAROXETINE. [Concomitant]
     Active Substance: PAROXETINE
     Indication: DEPRESSION
     Dosage: 5 (UNITS UNSPECIFIED)
     Route: 048
     Dates: start: 20150830
  7. FINASTERIDE. [Concomitant]
     Active Substance: FINASTERIDE
     Indication: SYNCOPE
     Dosage: 5 (UNITS UNSPECIFIED)
     Route: 048
     Dates: start: 20140331
  8. ZOLEDRONIC ACID [Concomitant]
     Active Substance: ZOLEDRONIC ACID
     Indication: PROPHYLAXIS
     Dosage: 5 (UNITS UNSPECIFIED)
     Route: 042
     Dates: start: 20160930
  9. ERGOCALCIFEROL. [Concomitant]
     Active Substance: ERGOCALCIFEROL
     Indication: OSTEOPOROSIS
     Route: 048
     Dates: start: 20160831
  10. ONDANSETRON [Concomitant]
     Active Substance: ONDANSETRON
     Indication: PROPHYLAXIS OF NAUSEA AND VOMITING
     Dosage: 5 (UNITS UNSPECIFIED)
     Route: 048
     Dates: start: 20170105
  11. CLONAZEPAM. [Concomitant]
     Active Substance: CLONAZEPAM
     Indication: ANXIETY
     Route: 048
     Dates: start: 2014
  12. MAGNESIUM OXIDE. [Concomitant]
     Active Substance: MAGNESIUM OXIDE
     Indication: HYPERPARATHYROIDISM SECONDARY
     Dosage: 5 (UNITS UNSPECIFIED)
     Route: 048
     Dates: start: 20150112
  13. EXCEDRIN [Concomitant]
     Active Substance: ACETAMINOPHEN\ASPIRIN\CAFFEINE
     Indication: ARTHRITIS
     Dosage: 5 (UNITS UNSPECIFIED)
     Route: 048
     Dates: start: 20170302
  14. LISINOPRIL. [Concomitant]
     Active Substance: LISINOPRIL
     Indication: HYPERTENSION
     Dosage: 5 (UNITS UNSPECIFIED)
     Route: 048
     Dates: start: 20171214
  15. NEOSPORIN [Concomitant]
     Active Substance: BACITRACIN ZINC\NEOMYCIN SULFATE\POLYMYXIN B SULFATE
     Indication: WOUND INFECTION
     Dosage: 5 (UNITS UNSPECIFIED)
     Route: 048
     Dates: start: 20180607
  16. DEXAMETHASONE. [Suspect]
     Active Substance: DEXAMETHASONE
     Indication: PLASMA CELL MYELOMA
     Dosage: ON D1, D8, D15, AND D22 OF A 28 DAY CYCLE
     Route: 048
     Dates: start: 20160819
  17. DEXAMETHASONE. [Suspect]
     Active Substance: DEXAMETHASONE
     Indication: PLASMA CELL MYELOMA
     Route: 042
     Dates: start: 20160819
  18. DOCUSATE [Concomitant]
     Active Substance: DOCUSATE
     Indication: CONSTIPATION
     Route: 048
     Dates: start: 20160812
  19. ESOMEPRAZOLE. [Concomitant]
     Active Substance: ESOMEPRAZOLE MAGNESIUM
     Indication: CHOLECYSTECTOMY
     Route: 048
     Dates: start: 20140331
  20. VENLAFAXINE [Concomitant]
     Active Substance: VENLAFAXINE HYDROCHLORIDE
     Indication: DEPRESSION
     Dosage: 5 (UNITS UNSPECIFIED)
     Route: 048
     Dates: start: 20130304
  21. EXCEDRIN [Concomitant]
     Active Substance: ACETAMINOPHEN\ASPIRIN\CAFFEINE
     Indication: BACK PAIN
     Dosage: 5 (UNITS UNSPECIFIED)
     Route: 048
     Dates: start: 20170302
  22. OXYCODONE [Concomitant]
     Active Substance: OXYCODONE
     Indication: BONE PAIN
     Dosage: 5 (UNITS UNSPECIFIED)
     Route: 061
     Dates: start: 20180712
  23. LENALIDOMIDE [Suspect]
     Active Substance: LENALIDOMIDE
     Indication: PLASMA CELL MYELOMA
     Dosage: ON D1 ? D21 OF EACH CYCLE
     Route: 048
     Dates: start: 20160819
  24. LIDOCAINE. [Concomitant]
     Active Substance: LIDOCAINE
     Indication: BONE PAIN
     Dosage: 5 (UNITS UNSPECIFIED)
     Route: 061
     Dates: start: 20160812
  25. POTASSIUM CHLORIDE. [Concomitant]
     Active Substance: POTASSIUM CHLORIDE
     Indication: HYPERPARATHYROIDISM SECONDARY
     Dosage: 5 (UNITS UNSPECIFIED)
     Route: 048
     Dates: start: 20150827

REACTIONS (1)
  - Ischaemic stroke [Recovered/Resolved]

NARRATIVE: CASE EVENT DATE: 20181018
